FAERS Safety Report 13743760 (Version 1)
Quarter: 2017Q3

REPORT INFORMATION
  Report Type: Report from Study
  Country: None (occurrence: CA)
  Receive Date: 20170711
  Receipt Date: 20170711
  Transmission Date: 20171127
  Serious: Yes (Other)
  Sender: FDA-Public Use
  Company Number: CA-ABBVIE-17K-028-1939601-00

PATIENT
  Sex: Male

DRUGS (1)
  1. HUMIRA [Suspect]
     Active Substance: ADALIMUMAB
     Indication: CROHN^S DISEASE
     Route: 058
     Dates: start: 20161006, end: 2017

REACTIONS (4)
  - Intestinal obstruction [Recovering/Resolving]
  - Post procedural discharge [Unknown]
  - Feeding disorder [Not Recovered/Not Resolved]
  - Dyspepsia [Not Recovered/Not Resolved]
